FAERS Safety Report 8243307-2 (Version None)
Quarter: 2012Q1

REPORT INFORMATION
  Report Type: 
  Country: None (occurrence: None)
  Receive Date: 20120329
  Receipt Date: 20120314
  Transmission Date: 20120608
  Serious: Yes (Life-Threatening, Hospitalization, Disabling)
  Sender: FDA-Public Use
  Company Number: JP-ROCHE-1047711

PATIENT
  Age: 87 Year
  Sex: Female

DRUGS (6)
  1. TORSEMIDE [Suspect]
     Indication: OEDEMA
     Route: 048
     Dates: start: 20101206, end: 20101224
  2. SARPOGRELATE [Suspect]
     Indication: PERIPHERAL ARTERIAL OCCLUSIVE DISEASE
     Route: 048
     Dates: start: 20101123
  3. ALPROSTADIL [Concomitant]
     Route: 041
     Dates: start: 20120217
  4. DORNER [Concomitant]
  5. PLETAL [Concomitant]
     Route: 048
     Dates: start: 20120217
  6. AMLODIPINE BESYLATE [Suspect]
     Indication: HYPERTENSION
     Route: 048

REACTIONS (2)
  - POOR PERIPHERAL CIRCULATION [None]
  - LEG AMPUTATION [None]
